FAERS Safety Report 26092232 (Version 3)
Quarter: 2025Q4

REPORT INFORMATION
  Report Type: Report from Study
  Country: US (occurrence: US)
  Receive Date: 20251126
  Receipt Date: 20251226
  Transmission Date: 20260118
  Serious: Yes (Hospitalization, Other)
  Sender: GILEAD
  Company Number: US-GILEAD-2025-0737953

PATIENT
  Age: 64 Year
  Sex: Male
  Weight: 116.6 kg

DRUGS (11)
  1. SACITUZUMAB GOVITECAN-HZIY [Suspect]
     Active Substance: SACITUZUMAB GOVITECAN-HZIY
     Indication: Small cell lung cancer
     Dosage: 10 MG/ML
     Route: 042
     Dates: start: 20251105, end: 20251112
  2. SACITUZUMAB GOVITECAN-HZIY [Suspect]
     Active Substance: SACITUZUMAB GOVITECAN-HZIY
     Dosage: 7.5 MG/KG
     Route: 042
  3. BERZOSERTIB [Suspect]
     Active Substance: BERZOSERTIB
     Indication: Small cell lung cancer
     Dosage: 20 MG/ML
     Route: 042
     Dates: start: 20251106, end: 20251113
  4. ALLOPURINOL [Concomitant]
     Active Substance: ALLOPURINOL
  5. ATENOLOL AND CHLORTHALIDONE [Concomitant]
     Active Substance: ATENOLOL\CHLORTHALIDONE
  6. COLCHICINE [Concomitant]
     Active Substance: COLCHICINE
  7. DEXAMETHASONE [Concomitant]
     Active Substance: DEXAMETHASONE
  8. MAGNESIUM CHLORIDE [Concomitant]
     Active Substance: MAGNESIUM CHLORIDE
  9. PANTOPRAZOLE [Concomitant]
     Active Substance: PANTOPRAZOLE
  10. LOSARTAN [Concomitant]
     Active Substance: LOSARTAN
  11. SODIUM CHLORIDE [Concomitant]
     Active Substance: SODIUM CHLORIDE

REACTIONS (1)
  - Acute kidney injury [Recovered/Resolved]

NARRATIVE: CASE EVENT DATE: 20251120
